FAERS Safety Report 8992416 (Version 2)
Quarter: 2013Q1

REPORT INFORMATION
  Report Type: Spontaneous
  Country: ES (occurrence: ES)
  Receive Date: 20121231
  Receipt Date: 20130222
  Transmission Date: 20140127
  Serious: Yes (Life-Threatening, Hospitalization)
  Sender: FDA-Public Use
  Company Number: ES-BRISTOL-MYERS SQUIBB COMPANY-17233651

PATIENT
  Age: 75 Year
  Sex: Female

DRUGS (1)
  1. ORENCIA [Suspect]
     Indication: RHEUMATOID ARTHRITIS
     Dosage: INTERR OCT 12?NO OF DOSE:7
     Route: 042
     Dates: start: 201205

REACTIONS (4)
  - Respiratory tract infection [Unknown]
  - Pulmonary alveolar haemorrhage [Unknown]
  - Acute respiratory failure [Unknown]
  - Skin lesion [Unknown]
